FAERS Safety Report 5107286-9 (Version None)
Quarter: 2006Q3

REPORT INFORMATION
  Report Type: 
  Country: None (occurrence: None)
  Receive Date: 20060914
  Receipt Date: 20060829
  Transmission Date: 20061208
  Serious: Yes (Hospitalization)
  Sender: FDA-Public Use
  Company Number: 2006-07-2074

PATIENT
  Age: 48 Year
  Sex: Female
  Weight: 109.7705 kg

DRUGS (9)
  1. PEG-INTRON [Suspect]
     Indication: HEPATITIS C
     Dosage: 150 MCG; SC
     Route: 058
     Dates: start: 20060630
  2. REBETOL [Suspect]
     Indication: HEPATITIS C
     Dosage: PO
     Route: 048
     Dates: start: 20060630
  3. ALBUTEROL SULFATE [Concomitant]
  4. ALTACE [Concomitant]
  5. CYMBALTA [Concomitant]
  6. LORAZEPAM [Concomitant]
  7. NEXIUM [Concomitant]
  8. PERCODAN [Concomitant]
  9. SPIRIVA [Concomitant]

REACTIONS (6)
  - CARDIAC FAILURE CONGESTIVE [None]
  - DEVICE FAILURE [None]
  - DIZZINESS [None]
  - INJECTION SITE ERYTHEMA [None]
  - PHARMACEUTICAL PRODUCT COMPLAINT [None]
  - WEIGHT DECREASED [None]
